FAERS Safety Report 9650831 (Version 1)
Quarter: 2013Q4

REPORT INFORMATION
  Report Type: Report from Study
  Country: PT (occurrence: PT)
  Receive Date: 20131029
  Receipt Date: 20131029
  Transmission Date: 20140711
  Serious: Yes (Hospitalization)
  Sender: FDA-Public Use
  Company Number: PT-ABBVIE-13P-130-1159703-00

PATIENT
  Age: 65 Year
  Sex: Female

DRUGS (7)
  1. HUMIRA [Suspect]
     Indication: RHEUMATOID ARTHRITIS
     Route: 058
     Dates: start: 20120417
  2. METHOTREXATE [Concomitant]
     Indication: RHEUMATOID ARTHRITIS
     Dates: start: 20120417
  3. ISONIAZIDE [Concomitant]
     Indication: ANTIBIOTIC PROPHYLAXIS
     Dates: start: 200811, end: 200811
  4. ISONIAZIDE [Concomitant]
     Dates: start: 201203
  5. SULFASALAZINE [Concomitant]
     Indication: RHEUMATOID ARTHRITIS
     Dates: start: 20120417
  6. SERTRALINE [Concomitant]
     Indication: DEPRESSION
     Dates: start: 20000630
  7. PARACETAMOL/CODEINE [Concomitant]
     Indication: ARTHRALGIA
     Dates: start: 200402

REACTIONS (1)
  - Osteoarthritis [Recovered/Resolved]
